FAERS Safety Report 16795896 (Version 1)
Quarter: 2019Q3

REPORT INFORMATION
  Report Type: Spontaneous
  Country: FR (occurrence: FR)
  Receive Date: 20190911
  Receipt Date: 20190911
  Transmission Date: 20191005
  Serious: Yes (Other)
  Sender: FDA-Public Use
  Company Number: FR-MYLANLABS-2019M1032862

PATIENT
  Age: 57 Year
  Sex: Female
  Weight: 73 kg

DRUGS (9)
  1. HYDROXYZINE [Suspect]
     Active Substance: HYDROXYZINE HYDROCHLORIDE
     Indication: PRODUCT USED FOR UNKNOWN INDICATION
     Dosage: UNK
     Route: 041
     Dates: start: 20180821, end: 20180908
  2. ZERBAXA [Suspect]
     Active Substance: CEFTOLOZANE SULFATE\TAZOBACTAM SODIUM
     Indication: SEPSIS
     Dosage: UNK
     Route: 041
     Dates: start: 20180821, end: 20180906
  3. LINEZOLID. [Suspect]
     Active Substance: LINEZOLID
     Indication: INFECTION
     Dosage: UNK
     Route: 041
     Dates: start: 20180830, end: 20180903
  4. ATROVENT [Suspect]
     Active Substance: IPRATROPIUM BROMIDE
     Indication: RESPIRATORY DISORDER
     Dosage: UNK
     Route: 055
     Dates: start: 20180827, end: 20180903
  5. VORICONAZOLE. [Suspect]
     Active Substance: VORICONAZOLE
     Indication: INFECTION
     Dosage: UNK
     Route: 041
     Dates: start: 20180829, end: 20180903
  6. GRANOCYTE [Suspect]
     Active Substance: LENOGRASTIM
     Indication: APLASIA
     Dosage: UNK
     Route: 058
     Dates: start: 20180830, end: 20180908
  7. BRICANYL [Suspect]
     Active Substance: TERBUTALINE SULFATE
     Indication: RESPIRATORY DISORDER
     Dosage: UNK
     Route: 055
     Dates: start: 20180827, end: 20180903
  8. COLIMYCINE                         /00013206/ [Suspect]
     Active Substance: COLISTIMETHATE SODIUM
     Indication: INFECTION
     Dosage: UNK
     Route: 055
     Dates: start: 20180822, end: 20180907
  9. LASILIX                            /00032601/ [Concomitant]
     Active Substance: FUROSEMIDE
     Indication: PRODUCT USED FOR UNKNOWN INDICATION
     Dosage: UNK
     Route: 065

REACTIONS (4)
  - Erythema [Recovering/Resolving]
  - Rash maculo-papular [Recovering/Resolving]
  - Product use in unapproved indication [Recovering/Resolving]
  - Intentional product misuse [Unknown]

NARRATIVE: CASE EVENT DATE: 20180903
